FAERS Safety Report 8561870-9 (Version None)
Quarter: 2012Q3

REPORT INFORMATION
  Report Type: 
  Country: None (occurrence: None)
  Receive Date: 20120802
  Receipt Date: 20120718
  Transmission Date: 20120928
  Serious: No
  Sender: FDA-Public Use
  Company Number: US-AMGEN-USASP2012014669

PATIENT
  Age: 64 Year
  Sex: Male

DRUGS (3)
  1. ENBREL [Suspect]
     Indication: PSORIASIS
     Dosage: 50 MG, 2 TIMES/WK
     Dates: start: 20111201, end: 20120501
  2. DOVONEX [Concomitant]
     Indication: PSORIASIS
     Dosage: BID
     Dates: start: 20120101
  3. AMLACTIN [Concomitant]
     Indication: PSORIASIS
     Dosage: BID
     Dates: start: 20120101

REACTIONS (7)
  - INJECTION SITE SWELLING [None]
  - PSORIASIS [None]
  - INJECTION SITE ERYTHEMA [None]
  - DRUG INEFFECTIVE [None]
  - INJECTION SITE PAIN [None]
  - HYPERSENSITIVITY [None]
  - INJECTION SITE REACTION [None]
